FAERS Safety Report 8901227 (Version 2)
Quarter: 2012Q4

REPORT INFORMATION
  Report Type: 
  Country: CR (occurrence: CR)
  Receive Date: 20121109
  Receipt Date: 20121120
  Transmission Date: 20130627
  Serious: Yes (Death, Other)
  Sender: FDA-Public Use
  Company Number: CR-ROCHE-1139282

PATIENT
  Sex: Female

DRUGS (2)
  1. HERCEPTIN [Suspect]
     Indication: ADJUVANT THERAPY
     Route: 042
     Dates: start: 201202
  2. TAXOL [Concomitant]
     Indication: ADJUVANT THERAPY

REACTIONS (2)
  - Cardiogenic shock [Fatal]
  - Cardiac failure congestive [Unknown]
